FAERS Safety Report 24589131 (Version 1)
Quarter: 2024Q4

REPORT INFORMATION
  Report Type: Spontaneous
  Country: ES (occurrence: ES)
  Receive Date: 20241107
  Receipt Date: 20241107
  Transmission Date: 20250115
  Serious: Yes (Other)
  Sender: BRACCO
  Company Number: ES-BRACCO-2024ES06664

PATIENT
  Age: 51 Year
  Sex: Male

DRUGS (1)
  1. PROHANCE [Suspect]
     Active Substance: GADOTERIDOL
     Indication: Magnetic resonance imaging prostate
     Dosage: 17 ML, SINGLE (THE CONTRAST WAS ADMINISTERED UNTAMPERED, USING AN INJECTION PUMP AT A SPEED OF 2.0 M
     Route: 042
     Dates: start: 20241010, end: 20241010

REACTIONS (4)
  - Product storage error [Unknown]
  - Respiratory distress [Recovered/Resolved]
  - Vomiting [Recovered/Resolved]
  - Urticaria [Recovered/Resolved]

NARRATIVE: CASE EVENT DATE: 20241010
